FAERS Safety Report 14601204 (Version 2)
Quarter: 2018Q2

REPORT INFORMATION
  Report Type: Report from Study
  Country: None (occurrence: US)
  Receive Date: 20180305
  Receipt Date: 20180427
  Transmission Date: 20180711
  Serious: Yes (Hospitalization)
  Sender: FDA-Public Use
  Company Number: US-VIFOR (INTERNATIONAL) INC.-VIT-2017-13569

PATIENT
  Age: 77 Year
  Sex: Female

DRUGS (14)
  1. CARVEDILOL. [Concomitant]
     Active Substance: CARVEDILOL
  2. FAMOTIDINE. [Concomitant]
     Active Substance: FAMOTIDINE
     Route: 048
  3. FLUOXETINE [Concomitant]
     Active Substance: FLUOXETINE HYDROCHLORIDE
     Route: 048
  4. VELTASSA [Suspect]
     Active Substance: PATIROMER
     Indication: HYPERKALAEMIA
     Route: 048
     Dates: start: 20171031
  5. SALBUTAMOL~~IPRATROPIUM [Concomitant]
     Indication: DYSPNOEA
     Dosage: 2.5MG-0.5MG/3ML
  6. GABAPENTIN. [Concomitant]
     Active Substance: GABAPENTIN
     Route: 048
  7. TRICOR [Concomitant]
     Active Substance: FENOFIBRATE
     Route: 048
  8. NOVOLIN N [Concomitant]
     Active Substance: INSULIN HUMAN
  9. ACETYLSALICYLIC ACID [Concomitant]
     Active Substance: ASPIRIN
     Route: 048
  10. OXYBUTYNIN HYDROCHLORIDE [Concomitant]
     Active Substance: OXYBUTYNIN CHLORIDE
     Indication: BLADDER DISORDER
     Route: 048
  11. PROAIR HFA [Concomitant]
     Active Substance: ALBUTEROL SULFATE
     Dosage: 2 PUFFS
  12. PARACETAMOL~~HYDROCODONE BITARTRATE [Concomitant]
     Dosage: 5/325 MG
     Route: 048
  13. NIFEDIPINE. [Concomitant]
     Active Substance: NIFEDIPINE
  14. BENAZEPRIL~~AMLODIPINE [Concomitant]
     Dosage: 5-40 MG

REACTIONS (3)
  - Tibia fracture [Not Recovered/Not Resolved]
  - Blood potassium increased [Recovered/Resolved]
  - Back pain [Not Recovered/Not Resolved]

NARRATIVE: CASE EVENT DATE: 2017
